FAERS Safety Report 9323650 (Version 2)
Quarter: 2013Q2

REPORT INFORMATION
  Report Type: Spontaneous
  Country: JP (occurrence: JP)
  Receive Date: 20130603
  Receipt Date: 20130611
  Transmission Date: 20140414
  Serious: Yes (Hospitalization)
  Sender: FDA-Public Use
  Company Number: PHHY2013JP055235

PATIENT
  Age: 66 Year
  Sex: Male
  Weight: 58 kg

DRUGS (3)
  1. VOLTAREN [Suspect]
     Indication: FLANK PAIN
     Dosage: 75 MG, TID
     Route: 048
  2. VOLTAREN [Suspect]
     Dosage: 25 MG, DAILY
     Route: 048
  3. CANDESARTAN CILEXETIL [Concomitant]
     Dosage: 8 MG

REACTIONS (15)
  - Renal disorder [Recovering/Resolving]
  - Hydronephrosis [Unknown]
  - Renal failure acute [Recovering/Resolving]
  - Hyperkalaemia [Unknown]
  - Urine output decreased [Unknown]
  - Oedema peripheral [Unknown]
  - Costovertebral angle tenderness [Unknown]
  - Blood urea increased [Unknown]
  - Ureteric dilatation [Unknown]
  - Breath sounds abnormal [Unknown]
  - Red blood cell sedimentation rate increased [Unknown]
  - Weight increased [Unknown]
  - Pain in extremity [Unknown]
  - Blood pressure increased [Unknown]
  - Anxiety [Unknown]
